FAERS Safety Report 18196854 (Version 2)
Quarter: 2020Q3

REPORT INFORMATION
  Report Type: Report from Study
  Country: None (occurrence: BE)
  Receive Date: 20200826
  Receipt Date: 20200907
  Transmission Date: 20201103
  Serious: Yes (Death)
  Sender: FDA-Public Use
  Company Number: BE-ABBVIE-19S-013-2654574-00

PATIENT
  Sex: Female

DRUGS (9)
  1. DUODOPA [Suspect]
     Active Substance: CARBIDOPA\LEVODOPA
     Dosage: DOSES CONTINUOUSLY MONITORED AND ADAPTED
     Route: 050
     Dates: start: 20100906, end: 20180313
  2. DUODOPA [Suspect]
     Active Substance: CARBIDOPA\LEVODOPA
     Indication: PARKINSON^S DISEASE
     Route: 050
     Dates: start: 20080328, end: 20080702
  3. DUODOPA [Suspect]
     Active Substance: CARBIDOPA\LEVODOPA
     Dosage: MD=8ML, CD=3ML/HR DURING 16HRS, ED=1ML
     Route: 050
     Dates: start: 20200605
  4. APO?GO [Concomitant]
     Active Substance: APOMORPHINE
     Indication: ON AND OFF PHENOMENON
  5. PROLOPA 125 DISP [Concomitant]
     Active Substance: BENSERAZIDE HYDROCHLORIDE\LEVODOPA
     Indication: PRODUCT USED FOR UNKNOWN INDICATION
     Dosage: FORM STRENGTH: 100MG/25MG; RESCUE MEDICATION
  6. DUODOPA [Suspect]
     Active Substance: CARBIDOPA\LEVODOPA
     Dosage: MD=6.5ML CD=BETWEEN 2.6 AND 3ML/HR DURING 16HRS  ED=1ML
     Route: 050
     Dates: start: 20190129
  7. DUODOPA [Suspect]
     Active Substance: CARBIDOPA\LEVODOPA
     Dosage: UNKNOWN DOSAGES
     Route: 050
     Dates: end: 20200605
  8. DUODOPA [Suspect]
     Active Substance: CARBIDOPA\LEVODOPA
     Dosage: MD=3.5ML CD=3.2ML/HR DURING 16HRS  ED=1ML
     Route: 050
     Dates: start: 20080702, end: 20100906
  9. DUODOPA [Suspect]
     Active Substance: CARBIDOPA\LEVODOPA
     Dosage: MD=6.5ML  CD=2.8ML/HR DURING 16HRS  ED=1ML
     Route: 050
     Dates: start: 20180313

REACTIONS (7)
  - Death [Fatal]
  - Dysphagia [Not Recovered/Not Resolved]
  - On and off phenomenon [Unknown]
  - Choking [Not Recovered/Not Resolved]
  - Confusional state [Unknown]
  - Dyskinesia [Not Recovered/Not Resolved]
  - Freezing phenomenon [Unknown]
